FAERS Safety Report 8421700-2 (Version None)
Quarter: 2012Q2

REPORT INFORMATION
  Report Type: 
  Country: None (occurrence: None)
  Receive Date: 20120608
  Receipt Date: 20110624
  Transmission Date: 20120825
  Serious: No
  Sender: FDA-Public Use
  Company Number: US-GLAXOSMITHKLINE-A0932947A

PATIENT
  Age: 59 Year
  Sex: Female

DRUGS (4)
  1. HYDROGEN PEROXIDE SOLUTION [Concomitant]
  2. ALTABAX [Suspect]
     Indication: WOUND
     Dosage: 1APP TWICE PER DAY
     Route: 061
     Dates: start: 20110620
  3. LEVAQUIN [Concomitant]
  4. UNKNOWN MEDICATION [Concomitant]

REACTIONS (3)
  - PAIN [None]
  - ARTHRALGIA [None]
  - BURNING SENSATION [None]
